FAERS Safety Report 11831301 (Version 2)
Quarter: 2015Q4

REPORT INFORMATION
  Report Type: Spontaneous
  Country: ES (occurrence: ES)
  Receive Date: 20151214
  Receipt Date: 20151223
  Transmission Date: 20160305
  Serious: Yes (Other)
  Sender: FDA-Public Use
  Company Number: ES-WATSON-2015-27185

PATIENT
  Age: 79 Year
  Sex: Male
  Weight: 90 kg

DRUGS (1)
  1. FENTANILO ACTAVIS [Suspect]
     Active Substance: FENTANYL
     Indication: OSTEOARTHRITIS
     Dosage: UNK UNK, UNKNOWN, 5 PARCH (5 PATCH)
     Route: 062
     Dates: start: 20151112, end: 20151127

REACTIONS (1)
  - Confusional state [Recovering/Resolving]

NARRATIVE: CASE EVENT DATE: 20151125
